FAERS Safety Report 6142016-3 (Version None)
Quarter: 2009Q2

REPORT INFORMATION
  Report Type: 
  Country: None (occurrence: None)
  Receive Date: 20090402
  Receipt Date: 20090325
  Transmission Date: 20091009
  Serious: Yes (Other)
  Sender: FDA-Public Use
  Company Number: US-ALLERGAN-0904058US

PATIENT
  Sex: Male

DRUGS (1)
  1. ACZONE GEL 5% [Suspect]
     Indication: ACNE
     Route: 061
     Dates: start: 20090303

REACTIONS (1)
  - HALLUCINATION [None]
